FAERS Safety Report 9791702 (Version 2)
Quarter: 2014Q1

REPORT INFORMATION
  Report Type: Spontaneous
  Country: US (occurrence: US)
  Receive Date: 20140102
  Receipt Date: 20140204
  Transmission Date: 20141002
  Serious: Yes (Other)
  Sender: FDA-Public Use
  Company Number: US-ROCHE-1327717

PATIENT
  Age: 71 Year
  Sex: Male
  Weight: 86.26 kg

DRUGS (3)
  1. XELODA [Suspect]
     Indication: COLON CANCER
     Dosage: 2000 MG IN MORNING AND 1500 MG IN EVENING , 14 DAYS ON AND 7 DAYS OFF
     Route: 048
     Dates: start: 20131218, end: 20131223
  2. NORVASC [Concomitant]
     Indication: HYPERTENSION
     Route: 048
  3. TRICOR (FENOFIBRATE) [Concomitant]
     Indication: BLOOD CHOLESTEROL INCREASED
     Route: 048

REACTIONS (1)
  - Arteriospasm coronary [Recovered/Resolved]
